FAERS Safety Report 12642400 (Version 2)
Quarter: 2017Q1

REPORT INFORMATION
  Report Type: Spontaneous
  Country: US (occurrence: US)
  Receive Date: 20160810
  Receipt Date: 20170316
  Transmission Date: 20170428
  Serious: Yes (Other)
  Sender: FDA-Public Use
  Company Number: US-AMGEN-USASP2016100605

PATIENT
  Age: 22 Year
  Sex: Female

DRUGS (15)
  1. DAUNORUBICIN [Concomitant]
     Active Substance: DAUNORUBICIN
     Indication: ACUTE MONOCYTIC LEUKAEMIA
  2. PEG/L-ASPARAGINASE [Concomitant]
     Active Substance: PEGASPARGASE
     Indication: ACUTE MONOCYTIC LEUKAEMIA
  3. CYCLOPHOSPHAMIDE. [Concomitant]
     Active Substance: CYCLOPHOSPHAMIDE
     Indication: ACUTE MYELOID LEUKAEMIA
  4. MERCAPTOPURINE. [Concomitant]
     Active Substance: MERCAPTOPURINE
     Indication: ACUTE MYELOID LEUKAEMIA
  5. CYTARABINE. [Concomitant]
     Active Substance: CYTARABINE
     Indication: ACUTE MONOCYTIC LEUKAEMIA
  6. MERCAPTOPURINE. [Concomitant]
     Active Substance: MERCAPTOPURINE
     Indication: ACUTE MONOCYTIC LEUKAEMIA
  7. VINCRISTINE [Concomitant]
     Active Substance: VINCRISTINE
     Indication: ACUTE MYELOID LEUKAEMIA
  8. METHOTREXATE. [Concomitant]
     Active Substance: METHOTREXATE
     Indication: ACUTE MONOCYTIC LEUKAEMIA
  9. DAUNORUBICIN [Concomitant]
     Active Substance: DAUNORUBICIN
     Indication: ACUTE MYELOID LEUKAEMIA
  10. PEG/L-ASPARAGINASE [Concomitant]
     Active Substance: PEGASPARGASE
     Indication: ACUTE MYELOID LEUKAEMIA
  11. BLINCYTO [Suspect]
     Active Substance: BLINATUMOMAB
     Indication: ACUTE LYMPHOCYTIC LEUKAEMIA
     Dosage: UNK
     Route: 065
  12. CYCLOPHOSPHAMIDE. [Concomitant]
     Active Substance: CYCLOPHOSPHAMIDE
     Indication: ACUTE MONOCYTIC LEUKAEMIA
  13. CYTARABINE. [Concomitant]
     Active Substance: CYTARABINE
     Indication: ACUTE MYELOID LEUKAEMIA
  14. VINCRISTINE [Concomitant]
     Active Substance: VINCRISTINE
     Indication: ACUTE MONOCYTIC LEUKAEMIA
  15. METHOTREXATE. [Concomitant]
     Active Substance: METHOTREXATE
     Indication: ACUTE MYELOID LEUKAEMIA

REACTIONS (2)
  - Infusion related reaction [Unknown]
  - Acute monocytic leukaemia [Unknown]
